FAERS Safety Report 16687493 (Version 3)
Quarter: 2019Q4

REPORT INFORMATION
  Report Type: Spontaneous
  Country: US (occurrence: US)
  Receive Date: 20190809
  Receipt Date: 20191126
  Transmission Date: 20200122
  Serious: Yes (Death, Other)
  Sender: FDA-Public Use
  Company Number: US-PFIZER INC-2019342053

PATIENT
  Sex: Male

DRUGS (1)
  1. LYRICA [Suspect]
     Active Substance: PREGABALIN
     Indication: PAIN
     Dosage: 5 DF, TOTAL

REACTIONS (3)
  - Nasopharyngitis [Unknown]
  - Feeling abnormal [Unknown]
  - Pneumonia [Fatal]

NARRATIVE: CASE EVENT DATE: 2012
